FAERS Safety Report 4644374-5 (Version None)
Quarter: 2005Q2

REPORT INFORMATION
  Report Type: 
  Country: None (occurrence: None)
  Receive Date: 20050331
  Receipt Date: 20041221
  Transmission Date: 20051028
  Serious: No
  Sender: FDA-Public Use
  Company Number: 04P-163-0284145-00

PATIENT
  Age: 58 Year
  Sex: Female
  Weight: 74.8435 kg

DRUGS (8)
  1. HUMIRA [Suspect]
     Indication: RHEUMATOID ARTHRITIS
     Dosage: 40 MG, 1 IN 2 WK, SUBCUTANEOUS
     Route: 058
     Dates: start: 20040701
  2. CELECOXIB [Concomitant]
  3. METHOTREXATE [Concomitant]
  4. FLUOXETINE HCL [Concomitant]
  5. FOLIC ACID [Concomitant]
  6. METOPROLOL SUCCINATE [Concomitant]
  7. LANSOPRAZOLE [Concomitant]
  8. MULTI-VITAMINS [Concomitant]

REACTIONS (1)
  - DIARRHOEA [None]
